FAERS Safety Report 26152139 (Version 1)
Quarter: 2025Q4

REPORT INFORMATION
  Report Type: Spontaneous
  Country: CN (occurrence: CN)
  Receive Date: 20251214
  Receipt Date: 20251214
  Transmission Date: 20260118
  Serious: Yes (Hospitalization, Other)
  Sender: AZURITY PHARMACEUTICALS
  Company Number: CN-AZURITY PHARMACEUTICALS, INC.-AZR202511-003668

PATIENT
  Age: 27 Year
  Sex: Male

DRUGS (3)
  1. PRILOSEC [Suspect]
     Active Substance: OMEPRAZOLE MAGNESIUM
     Indication: Chronic gastritis
     Dosage: 40 MILLIGRAM, DAILY
     Route: 065
  2. SILIBININ [Concomitant]
     Active Substance: SILIBININ
     Indication: Hepatic cirrhosis
     Dosage: UNK
     Route: 065
  3. URSODIOL [Concomitant]
     Active Substance: URSODIOL
     Indication: Hepatic cirrhosis
     Dosage: UNK
     Route: 065

REACTIONS (2)
  - Insulin autoimmune syndrome [Recovered/Resolved]
  - Product use in unapproved indication [Unknown]
